FAERS Safety Report 18937212 (Version 2)
Quarter: 2021Q2

REPORT INFORMATION
  Report Type: Spontaneous
  Country: NL (occurrence: NL)
  Receive Date: 20210225
  Receipt Date: 20210624
  Transmission Date: 20210717
  Serious: Yes (Hospitalization, Other)
  Sender: FDA-Public Use
  Company Number: NL-AUROBINDO-AUR-APL-2021-007746

PATIENT
  Age: 34 Year
  Sex: Female

DRUGS (4)
  1. ACETYLSALICYLIC ACID [Concomitant]
     Active Substance: ASPIRIN
     Indication: PRODUCT USED FOR UNKNOWN INDICATION
     Dosage: 80 MILLIGRAM, ONCE A DAY
     Route: 065
  2. CINACALCET. [Suspect]
     Active Substance: CINACALCET
     Dosage: 90 MILLIGRAM, ONCE A DAY
     Route: 065
  3. CINACALCET. [Suspect]
     Active Substance: CINACALCET
     Indication: HYPERPARATHYROIDISM PRIMARY
     Dosage: 60 MILLIGRAM, ONCE A DAY
     Route: 065
  4. FUROSEMIDE. [Concomitant]
     Active Substance: FUROSEMIDE
     Indication: PROPHYLAXIS
     Dosage: 40 MILLIGRAM, ONCE A DAY
     Route: 065

REACTIONS (9)
  - Gestational hypertension [Unknown]
  - Caesarean section [Unknown]
  - Depression [Recovered/Resolved]
  - HELLP syndrome [Unknown]
  - Hyperemesis gravidarum [Unknown]
  - Hypercalcaemia [Unknown]
  - Deep vein thrombosis [Unknown]
  - Maternal exposure during pregnancy [Unknown]
  - Post-traumatic stress disorder [Recovered/Resolved]
